FAERS Safety Report 12979746 (Version 2)
Quarter: 2016Q4

REPORT INFORMATION
  Report Type: Spontaneous
  Country: FR (occurrence: FR)
  Receive Date: 20161128
  Receipt Date: 20161208
  Transmission Date: 20170207
  Serious: Yes (Other)
  Sender: FDA-Public Use
  Company Number: FR-009507513-1611FRA011220

PATIENT
  Sex: Female

DRUGS (3)
  1. TEMODAL [Suspect]
     Active Substance: TEMOZOLOMIDE
     Indication: GLIOBLASTOMA
     Dosage: UNK
     Route: 048
     Dates: start: 20160202, end: 20160703
  2. AVASTIN (SIMVASTATIN) [Suspect]
     Active Substance: SIMVASTATIN
     Indication: GLIOBLASTOMA
  3. BELUSTINE [Suspect]
     Active Substance: LOMUSTINE
     Indication: GLIOBLASTOMA

REACTIONS (3)
  - Disease progression [Unknown]
  - Glioblastoma [Unknown]
  - Therapy non-responder [Unknown]

NARRATIVE: CASE EVENT DATE: 2015
